FAERS Safety Report 24936709 (Version 1)
Quarter: 2025Q1

REPORT INFORMATION
  Report Type: Spontaneous
  Country: US (occurrence: US)
  Receive Date: 20250206
  Receipt Date: 20250206
  Transmission Date: 20250409
  Serious: No
  Sender: OTSUKA
  Company Number: US-OTSUKA-2024_033644

PATIENT

DRUGS (1)
  1. ABILIFY ASIMTUFII [Suspect]
     Active Substance: ARIPIPRAZOLE
     Indication: Product used for unknown indication
     Route: 065

REACTIONS (3)
  - Poverty of speech [Unknown]
  - Feeling abnormal [Unknown]
  - Apathy [Unknown]
